FAERS Safety Report 5342491-8 (Version None)
Quarter: 2007Q2

REPORT INFORMATION
  Report Type: 
  Country: None (occurrence: None)
  Receive Date: 20070601
  Receipt Date: 20070518
  Transmission Date: 20071010
  Serious: Yes (Hospitalization)
  Sender: FDA-Public Use
  Company Number: FR-SHR-FR-2007-018925

PATIENT
  Age: 71 Year
  Sex: Male

DRUGS (6)
  1. SOTALOL HYDROCHLORIDE [Suspect]
     Dates: end: 20070405
  2. INDAPAMIDE [Suspect]
     Dates: end: 20070405
  3. ROVAMYCINE [Suspect]
     Dates: end: 20070405
  4. KARDEGIC                                /FRA/ [Suspect]
     Dates: end: 20070405
  5. ALLOPURINOL [Suspect]
     Dates: end: 20070405
  6. TETRAZEPAM [Suspect]
     Dates: end: 20070324

REACTIONS (4)
  - EOSINOPHILIA [None]
  - HAEMOLYTIC ANAEMIA [None]
  - HEPATITIS CHOLESTATIC [None]
  - RASH [None]
